FAERS Safety Report 8514078-7 (Version None)
Quarter: 2012Q3

REPORT INFORMATION
  Report Type: 
  Country: None (occurrence: None)
  Receive Date: 20120717
  Receipt Date: 20120704
  Transmission Date: 20120928
  Serious: Yes (Hospitalization)
  Sender: FDA-Public Use
  Company Number: DK-009507513-1207DNK003369

PATIENT

DRUGS (8)
  1. DIGOXIN [Interacting]
  2. COZAAR [Suspect]
     Dosage: UNK
     Route: 048
     Dates: end: 20120625
  3. ENALAPRIL MALEATE [Interacting]
     Dosage: UNK
     Dates: end: 20120625
  4. FLUTICASONE PROPIONATE/SALMETEROL [Concomitant]
  5. ASPIRIN [Concomitant]
  6. SIMVASTATIN [Concomitant]
  7. ISOPTIN [Interacting]
     Dosage: UNK
     Dates: end: 20120625
  8. FUROSEMIDE [Concomitant]

REACTIONS (3)
  - HYPOTENSION [None]
  - DYSPNOEA [None]
  - ATRIOVENTRICULAR BLOCK [None]
